FAERS Safety Report 15763013 (Version 1)
Quarter: 2018Q4

REPORT INFORMATION
  Report Type: Spontaneous
  Country: JP (occurrence: JP)
  Receive Date: 20181226
  Receipt Date: 20181226
  Transmission Date: 20190205
  Serious: Yes (Other)
  Sender: FDA-Public Use
  Company Number: GXJP2018JP001861

PATIENT
  Age: 72 Year
  Sex: Male

DRUGS (1)
  1. METHOTREXATE CAPSULE [Suspect]
     Active Substance: METHOTREXATE
     Indication: RHEUMATIC DISORDER
     Dosage: 8 MG, UNK
     Route: 048
     Dates: start: 201805

REACTIONS (7)
  - Cough [Unknown]
  - Pneumonia [Unknown]
  - Productive cough [Unknown]
  - Blood creatinine increased [Unknown]
  - Eczema [Unknown]
  - Asthma [Unknown]
  - Dizziness [Unknown]
